FAERS Safety Report 24752346 (Version 1)
Quarter: 2024Q4

REPORT INFORMATION
  Report Type: Report from Study
  Country: CA (occurrence: CA)
  Receive Date: 20241219
  Receipt Date: 20241219
  Transmission Date: 20250115
  Serious: Yes (Hospitalization)
  Sender: BIOVITRUM
  Company Number: CA-BIOVITRUM-2024-CA-016017

PATIENT
  Age: 70 Year
  Sex: Female

DRUGS (2)
  1. KINERET [Suspect]
     Active Substance: ANAKINRA
     Indication: Pericarditis
     Dosage: DAILY
     Route: 058
     Dates: start: 202410
  2. SILIQ [Concomitant]
     Active Substance: BRODALUMAB
     Indication: Product used for unknown indication

REACTIONS (5)
  - Rash [Unknown]
  - Swelling [Unknown]
  - Dyspnoea [Unknown]
  - Off label use [Unknown]
  - Hypersensitivity [Unknown]

NARRATIVE: CASE EVENT DATE: 20241001
